FAERS Safety Report 5535161-4 (Version None)
Quarter: 2007Q4

REPORT INFORMATION
  Report Type: 
  Country: None (occurrence: None)
  Receive Date: 20071206
  Receipt Date: 20071128
  Transmission Date: 20080405
  Serious: Yes (Other)
  Sender: FDA-Public Use
  Company Number: PHBS2007JP20126

PATIENT
  Age: 60 Year
  Sex: Male

DRUGS (5)
  1. ZOMETA [Suspect]
     Indication: MULTIPLE MYELOMA
     Dosage: 4 MG, UNK
     Route: 042
     Dates: start: 20070501
  2. AREDIA [Suspect]
     Route: 042
  3. DEXAMETHASONE TAB [Concomitant]
  4. THALIDOMIDE [Concomitant]
  5. ANGIOTENSIN CONVERTING ENZYME BLOCKERS [Concomitant]
     Indication: HYPERTENSION

REACTIONS (1)
  - OSTEONECROSIS [None]
